FAERS Safety Report 6571167-4 (Version None)
Quarter: 2010Q1

REPORT INFORMATION
  Report Type: 
  Country: None (occurrence: None)
  Receive Date: 20100129
  Receipt Date: 20100113
  Transmission Date: 20100710
  Serious: Yes (Death, Hospitalization)
  Sender: FDA-Public Use
  Company Number: 2009AC000382

PATIENT
  Age: 73 Year
  Sex: Female

DRUGS (15)
  1. DIGOXIN [Suspect]
     Dosage: 0.125 MG;QD;PO
     Route: 048
  2. LEVOPHED [Concomitant]
  3. BICARBONATE [Concomitant]
  4. CAPOTEN [Concomitant]
  5. FUROSEMIDE [Concomitant]
  6. ASPIRIN [Concomitant]
  7. CAPTOPRIL [Concomitant]
  8. GLYBURIDE [Concomitant]
  9. MULTI-VITAMIN [Concomitant]
  10. HEPARIN SUBCU [Concomitant]
  11. FUROSEMIDE [Concomitant]
  12. NITROSTAT [Concomitant]
  13. PHENERGAN HCL [Concomitant]
  14. LEVOTHYROXINE SODIUM [Concomitant]
  15. SPIRONOLACTONE [Concomitant]

REACTIONS (32)
  - ACTIVITIES OF DAILY LIVING IMPAIRED [None]
  - AORTIC STENOSIS [None]
  - ATRIAL FIBRILLATION [None]
  - ATRIAL FLUTTER [None]
  - BACK PAIN [None]
  - BRADYCARDIA [None]
  - CARDIAC FAILURE CONGESTIVE [None]
  - CARDIOMYOPATHY [None]
  - CONDITION AGGRAVATED [None]
  - CONGESTIVE CARDIOMYOPATHY [None]
  - CORONARY ARTERY DISEASE [None]
  - DEATH OF RELATIVE [None]
  - ECONOMIC PROBLEM [None]
  - FAMILY STRESS [None]
  - HEART RATE DECREASED [None]
  - HYPERKALAEMIA [None]
  - HYPOTENSION [None]
  - INJURY [None]
  - MENTAL DISORDER [None]
  - METABOLIC ACIDOSIS [None]
  - MITRAL VALVE INCOMPETENCE [None]
  - MYOCARDIAL INFARCTION [None]
  - OEDEMA PERIPHERAL [None]
  - PAIN [None]
  - PARAESTHESIA [None]
  - PULMONARY OEDEMA [None]
  - RENAL FAILURE [None]
  - RENAL IMPAIRMENT [None]
  - RESPIRATORY FAILURE [None]
  - SEPSIS [None]
  - SOCIAL PROBLEM [None]
  - WEIGHT DECREASED [None]
